FAERS Safety Report 17716833 (Version 2)
Quarter: 2020Q2

REPORT INFORMATION
  Report Type: Spontaneous
  Country: US (occurrence: US)
  Receive Date: 20200428
  Receipt Date: 20200507
  Transmission Date: 20200714
  Serious: Yes (Life-Threatening, Hospitalization)
  Sender: FDA-Public Use
  Company Number: US-KARYOPHARM-2020KPT000471

PATIENT

DRUGS (11)
  1. AZTREONAM. [Concomitant]
     Active Substance: AZTREONAM
     Indication: PRODUCT USED FOR UNKNOWN INDICATION
  2. NORMAL SALINE [Concomitant]
     Active Substance: SODIUM CHLORIDE
     Indication: PRODUCT USED FOR UNKNOWN INDICATION
  3. DOXYCYCLINE. [Concomitant]
     Active Substance: DOXYCYCLINE
     Indication: PRODUCT USED FOR UNKNOWN INDICATION
  4. PROTONIX [Concomitant]
     Active Substance: PANTOPRAZOLE SODIUM
     Indication: PRODUCT USED FOR UNKNOWN INDICATION
  5. MIRALAX [Concomitant]
     Active Substance: POLYETHYLENE GLYCOL 3350
     Indication: PRODUCT USED FOR UNKNOWN INDICATION
  6. METOLAZONE. [Concomitant]
     Active Substance: METOLAZONE
     Indication: PRODUCT USED FOR UNKNOWN INDICATION
  7. MORPHINE [Concomitant]
     Active Substance: MORPHINE
     Indication: PRODUCT USED FOR UNKNOWN INDICATION
  8. DEXAMETHASONE. [Concomitant]
     Active Substance: DEXAMETHASONE
     Indication: PRODUCT USED FOR UNKNOWN INDICATION
  9. ACETAMINOPHEN. [Concomitant]
     Active Substance: ACETAMINOPHEN
     Indication: PRODUCT USED FOR UNKNOWN INDICATION
  10. XPOVIO [Suspect]
     Active Substance: SELINEXOR
     Indication: PRODUCT USED FOR UNKNOWN INDICATION
     Dosage: 20 MG, 3X/WEEK
     Route: 048
     Dates: start: 20200417
  11. HEPARIN [Concomitant]
     Active Substance: HEPARIN SODIUM
     Indication: PRODUCT USED FOR UNKNOWN INDICATION

REACTIONS (4)
  - Coronavirus infection [Not Recovered/Not Resolved]
  - Hypoxia [Unknown]
  - Off label use [Not Recovered/Not Resolved]
  - Hyperkalaemia [Unknown]

NARRATIVE: CASE EVENT DATE: 202004
